FAERS Safety Report 16172700 (Version 1)
Quarter: 2019Q2

REPORT INFORMATION
  Report Type: Spontaneous
  Country: NZ (occurrence: NZ)
  Receive Date: 20190409
  Receipt Date: 20190409
  Transmission Date: 20190711
  Serious: Yes (Hospitalization)
  Sender: FDA-Public Use
  Company Number: NZ-ABBVIE-19K-118-2714114-00

PATIENT
  Age: 26 Year
  Sex: Male
  Weight: 70 kg

DRUGS (6)
  1. METHOTREXATE. [Concomitant]
     Active Substance: METHOTREXATE
     Indication: CROHN^S DISEASE
     Route: 058
  2. MERCAPTOPURINE. [Suspect]
     Active Substance: MERCAPTOPURINE
     Indication: PRODUCT USED FOR UNKNOWN INDICATION
     Route: 065
  3. MERCAPTOPURINE. [Suspect]
     Active Substance: MERCAPTOPURINE
     Route: 065
  4. PREDNISONE. [Concomitant]
     Active Substance: PREDNISONE
     Indication: PRODUCT USED FOR UNKNOWN INDICATION
     Dosage: TAPER FROM 20MG
  5. HUMIRA [Suspect]
     Active Substance: ADALIMUMAB
     Indication: CROHN^S DISEASE
     Route: 058
     Dates: start: 20180903
  6. METHOTREXATE. [Concomitant]
     Active Substance: METHOTREXATE
     Dosage: INCREASED TO 20MG WEEKLY
     Route: 058
     Dates: start: 20180903

REACTIONS (16)
  - Drug hypersensitivity [Unknown]
  - Nausea [Unknown]
  - Headache [Unknown]
  - Ileal perforation [Unknown]
  - Gastrointestinal disorder [Unknown]
  - Post concussion syndrome [Unknown]
  - Gastrointestinal erosion [Unknown]
  - Stenosis [Unknown]
  - Abdominal discomfort [Recovering/Resolving]
  - Condition aggravated [Unknown]
  - Crohn^s disease [Unknown]
  - Ileal stenosis [Unknown]
  - Faecal calprotectin abnormal [Unknown]
  - Arthralgia [Unknown]
  - Food intolerance [Unknown]
  - Ileal ulcer [Unknown]

NARRATIVE: CASE EVENT DATE: 20180920
